FAERS Safety Report 9538075 (Version 2)
Quarter: 2013Q3

REPORT INFORMATION
  Report Type: Spontaneous
  Country: IT (occurrence: IT)
  Receive Date: 20130920
  Receipt Date: 20130924
  Transmission Date: 20140515
  Serious: Yes (Hospitalization)
  Sender: FDA-Public Use
  Company Number: IT-RANBAXY-2013RR-73087

PATIENT
  Age: 60 Year
  Sex: Male

DRUGS (5)
  1. AMOXICILLIN [Suspect]
     Indication: TRACHEITIS
     Dosage: 1 G, COMPLETE
     Route: 048
     Dates: start: 20130405, end: 20130405
  2. LOBIVON [Concomitant]
     Indication: HYPERTENSION
     Dosage: UNK
     Route: 065
  3. ACCURETIC [Concomitant]
     Indication: HYPERTENSION
     Dosage: UNK
     Route: 065
  4. CARDURA [Concomitant]
     Indication: HYPERTENSION
     Dosage: UNK
     Route: 065
  5. OLPREZIDE [Concomitant]
     Indication: HYPERTENSION
     Dosage: UNK
     Route: 065

REACTIONS (3)
  - Bronchospasm [Recovering/Resolving]
  - Generalised erythema [Recovering/Resolving]
  - Eyelid oedema [Recovering/Resolving]
